FAERS Safety Report 5975984-0 (Version None)
Quarter: 2008Q4

REPORT INFORMATION
  Report Type: 
  Country: None (occurrence: None)
  Receive Date: 20081202
  Receipt Date: 20081124
  Transmission Date: 20090506
  Serious: Yes (Hospitalization, Other)
  Sender: FDA-Public Use
  Company Number: BE-JNJFOC-20081105701

PATIENT
  Age: 80 Year
  Sex: Female

DRUGS (2)
  1. INFLIXIMAB [Suspect]
     Dosage: DURATION 6 YEARS AND 6 MONTHS
     Route: 042
  2. INFLIXIMAB [Suspect]
     Indication: RHEUMATOID ARTHRITIS
     Dosage: DURATION 6 YEARS AND 6 MONTHS
     Route: 042

REACTIONS (4)
  - ADENOCARCINOMA [None]
  - BILE DUCT STONE [None]
  - CHILLS [None]
  - PYREXIA [None]
